FAERS Safety Report 24238184 (Version 3)
Quarter: 2024Q3

REPORT INFORMATION
  Report Type: Report from Study
  Country: CA (occurrence: CA)
  Receive Date: 20240822
  Receipt Date: 20240918
  Transmission Date: 20241017
  Serious: No
  Sender: ROCHE
  Company Number: CA-ROCHE-10000061856

PATIENT
  Sex: Female

DRUGS (1)
  1. OCREVUS [Suspect]
     Active Substance: OCRELIZUMAB
     Indication: Relapsing-remitting multiple sclerosis
     Dosage: MORE DOSAGE INFORMATION IS 300 MG AT DAY 0 AND 14, THEN 600 MG EVERY 6 MONTHS
     Route: 042
     Dates: start: 20190704

REACTIONS (12)
  - COVID-19 [Unknown]
  - Sinusitis [Unknown]
  - Adverse drug reaction [Unknown]
  - Lung disorder [Unknown]
  - Pneumonia [Unknown]
  - Pyrexia [Unknown]
  - Hypersomnia [Unknown]
  - Cough [Unknown]
  - Painful respiration [Unknown]
  - Bronchitis [Recovering/Resolving]
  - Pharyngitis [Recovering/Resolving]
  - Hepatitis [Unknown]
